APPROVED DRUG PRODUCT: INDOMETHACIN
Active Ingredient: INDOMETHACIN
Strength: 25MG/5ML
Dosage Form/Route: SUSPENSION;ORAL
Application: A217883 | Product #001 | TE Code: AB
Applicant: NOVITIUM PHARMA LLC
Approved: Jan 12, 2024 | RLD: No | RS: No | Type: RX